FAERS Safety Report 24745349 (Version 1)
Quarter: 2024Q4

REPORT INFORMATION
  Report Type: Report from Study
  Country: US (occurrence: US)
  Receive Date: 20241217
  Receipt Date: 20241217
  Transmission Date: 20250115
  Serious: Yes (Other)
  Sender: JOHNSON AND JOHNSON
  Company Number: US-JNJFOC-20241221368

PATIENT
  Age: 34 Year
  Sex: Male

DRUGS (4)
  1. SPRAVATO [Suspect]
     Active Substance: ESKETAMINE
     Indication: Depression
     Dosage: ^84 MG, 1 TOTAL DOSE^
     Route: 045
     Dates: start: 20241025, end: 20241025
  2. SPRAVATO [Suspect]
     Active Substance: ESKETAMINE
     Dosage: ^56 MG, 3 TOTAL DOSES^
     Route: 045
     Dates: start: 20241030, end: 20241108
  3. SPRAVATO [Suspect]
     Active Substance: ESKETAMINE
     Dosage: ^56 MG, 2 TOTAL DOSES^
     Route: 045
     Dates: start: 20241016, end: 20241023
  4. SPRAVATO [Suspect]
     Active Substance: ESKETAMINE
     Dosage: ^84 MG, 2 TOTAL DOSES^
     Route: 045
     Dates: start: 20241113, end: 20241115

REACTIONS (1)
  - Depression [Unknown]

NARRATIVE: CASE EVENT DATE: 20240101
